FAERS Safety Report 21099472 (Version 19)
Quarter: 2023Q4

REPORT INFORMATION
  Report Type: Spontaneous
  Country: CA (occurrence: CA)
  Receive Date: 20220719
  Receipt Date: 20231128
  Transmission Date: 20240110
  Serious: Yes (Hospitalization)
  Sender: FDA-Public Use
  Company Number: CA-PFIZER INC-PV202200016324

PATIENT
  Age: 62 Year
  Sex: Female
  Weight: 70.7 kg

DRUGS (9)
  1. IBRANCE [Suspect]
     Active Substance: PALBOCICLIB
     Dosage: 100 MG X 21DYS AND 7 DAYS OFF
     Route: 048
     Dates: start: 20220815
  2. IBRANCE [Suspect]
     Active Substance: PALBOCICLIB
     Dosage: 125 MG, CYCLIC, 21 DAYS AND 7 DAYS OFF
     Route: 048
  3. IBRANCE [Suspect]
     Active Substance: PALBOCICLIB
     Dosage: 100 MG X 21DYS AND 7 DAYS OFF
     Route: 048
     Dates: start: 2022
  4. IBRANCE [Suspect]
     Active Substance: PALBOCICLIB
     Dosage: 100 MG, CYCLIC (TAKE 1 TABLET, 100 MG TOTAL DAILY FOR 21 DAYS THEN STOP FOR 7DAYS)
     Route: 048
  5. LETROZOLE [Concomitant]
     Active Substance: LETROZOLE
     Dosage: UNK, CYCLE: DAY 1, CYCLE:2
     Dates: start: 2022
  6. LETROZOLE [Concomitant]
     Active Substance: LETROZOLE
     Dosage: UNK, CYCLE: DAY 1, CYCLE:3
     Dates: start: 2022
  7. LETROZOLE [Concomitant]
     Active Substance: LETROZOLE
     Dosage: UNK, CYCLE: DAY 1, CYCLE:7
     Dates: start: 2022
  8. LETROZOLE [Concomitant]
     Active Substance: LETROZOLE
     Dosage: UNK, CYCLE: DAY 1, CYCLE:9
  9. LETROZOLE [Concomitant]
     Active Substance: LETROZOLE
     Dosage: 2.5 MG, DAILY, CYCLE:DAY 1, CYCLE:14
     Route: 048

REACTIONS (10)
  - Viral infection [Unknown]
  - Feeling abnormal [Unknown]
  - Immune system disorder [Unknown]
  - Malaise [Unknown]
  - Emotional disorder [Unknown]
  - Ear infection [Unknown]
  - Full blood count abnormal [Unknown]
  - Weight fluctuation [Unknown]
  - Pyrexia [Unknown]
  - Body surface area increased [Unknown]

NARRATIVE: CASE EVENT DATE: 20220101
